FAERS Safety Report 8911973 (Version 4)
Quarter: 2014Q3

REPORT INFORMATION
  Report Type: Spontaneous
  Country: US (occurrence: US)
  Receive Date: 20121115
  Receipt Date: 20140730
  Transmission Date: 20150326
  Serious: Yes (Hospitalization, Other)
  Sender: FDA-Public Use
  Company Number: US-009507513-1211USA003078

PATIENT
  Sex: Female
  Weight: 61.22 kg

DRUGS (3)
  1. NUVARING [Suspect]
     Active Substance: ETHINYL ESTRADIOL\ETONOGESTREL
     Indication: CONTRACEPTION
     Dosage: UNK
     Route: 067
     Dates: start: 20091209, end: 20100202
  2. TOPAMAX [Concomitant]
     Active Substance: TOPIRAMATE
     Indication: MIGRAINE
  3. WELLBUTRIN [Concomitant]
     Active Substance: BUPROPION HYDROCHLORIDE
     Indication: ANXIETY

REACTIONS (11)
  - Deep vein thrombosis [Recovered/Resolved]
  - Surgery [Unknown]
  - Haematuria [Unknown]
  - Joint dislocation [Recovered/Resolved]
  - Pulmonary embolism [Recovered/Resolved]
  - Pleurisy [Unknown]
  - Dysuria [Unknown]
  - Hypoglycaemia [Unknown]
  - Nasal septum deviation [Unknown]
  - Chest pain [Unknown]
  - Rhinoplasty [Unknown]

NARRATIVE: CASE EVENT DATE: 2010
